FAERS Safety Report 6524672-0 (Version None)
Quarter: 2010Q1

REPORT INFORMATION
  Report Type: 
  Country: None (occurrence: None)
  Receive Date: 20100104
  Receipt Date: 20091228
  Transmission Date: 20100710
  Serious: Yes (Other)
  Sender: FDA-Public Use
  Company Number: US-BAYER-200917897BCC

PATIENT
  Age: 36 Year
  Sex: Female
  Weight: 75 kg

DRUGS (7)
  1. ALKA-SELTZER PLUS COLD EFFERVESCENT TABLETS UNKNOWN FORMULA [Suspect]
     Indication: NASOPHARYNGITIS
     Dosage: TOTAL DAILY DOSE: 4 DF  UNIT DOSE: 1 DF
     Route: 048
     Dates: start: 20091011, end: 20091015
  2. ALKA-SELTZER PLUS COLD SPARKLING ORIGINAL EFFERVESCENT TABLETS [Suspect]
     Indication: NASOPHARYNGITIS
     Dosage: UNIT DOSE: 1 DF
     Route: 048
     Dates: start: 20091225
  3. ALKA-SELTZER PLUS NIGHT-TIME COLD EFFERVESCENT TABLETS [Suspect]
     Indication: NASOPHARYNGITIS
     Dosage: UNIT DOSE: 1 DF
     Route: 048
     Dates: start: 20091225
  4. SYNTHROID [Concomitant]
     Indication: HYPOTHYROIDISM
     Route: 065
  5. SYNTHROID [Concomitant]
     Route: 065
  6. CYMBALTA [Concomitant]
     Route: 065
  7. ALLEGRA [Concomitant]
     Route: 065

REACTIONS (2)
  - LOSS OF CONSCIOUSNESS [None]
  - URTICARIA [None]
